FAERS Safety Report 8420604-9 (Version None)
Quarter: 2012Q2

REPORT INFORMATION
  Report Type: 
  Country: None (occurrence: None)
  Receive Date: 20120608
  Receipt Date: 20120531
  Transmission Date: 20120825
  Serious: No
  Sender: FDA-Public Use
  Company Number: US-BIOGENIDEC-2012BI019235

PATIENT
  Sex: Female

DRUGS (2)
  1. TYSABRI [Suspect]
     Indication: MULTIPLE SCLEROSIS
     Route: 042
     Dates: start: 20110421, end: 20110518
  2. TYSABRI [Suspect]
     Route: 042
     Dates: start: 20110824, end: 20110824

REACTIONS (4)
  - DECREASED APPETITE [None]
  - ANXIETY [None]
  - TREMOR [None]
  - INSOMNIA [None]
